FAERS Safety Report 6920165-7 (Version None)
Quarter: 2010Q3

REPORT INFORMATION
  Report Type: 
  Country: None (occurrence: None)
  Receive Date: 20100809
  Receipt Date: 20100802
  Transmission Date: 20110219
  Serious: Yes (Other)
  Sender: FDA-Public Use
  Company Number: 2010SP042070

PATIENT
  Age: 52 Year
  Sex: Male

DRUGS (3)
  1. REFLEX (MIRTAZAPINE /01293201/) [Suspect]
     Indication: DEPRESSION
     Dosage: 30 MG; QD; PO 15 MG; QD; PO
     Route: 048
     Dates: start: 20091023, end: 20100509
  2. REFLEX (MIRTAZAPINE /01293201/) [Suspect]
     Indication: DEPRESSION
     Dosage: 30 MG; QD; PO 15 MG; QD; PO
     Route: 048
     Dates: start: 20100510, end: 20100617
  3. HALCION [Suspect]
     Indication: PRODUCT USED FOR UNKNOWN INDICATION
     Dosage: 0.5 MG; HS; PO
     Route: 048
     Dates: start: 20090804

REACTIONS (2)
  - AMNESIA [None]
  - DRUG INTERACTION [None]
